FAERS Safety Report 8346189-3 (Version None)
Quarter: 2012Q2

REPORT INFORMATION
  Report Type: 
  Country: None (occurrence: None)
  Receive Date: 20120507
  Receipt Date: 20120430
  Transmission Date: 20120825
  Serious: Yes (Hospitalization)
  Sender: FDA-Public Use
  Company Number: 201205001

PATIENT
  Age: 56 Year
  Sex: Male
  Weight: 97.5234 kg

DRUGS (3)
  1. ATENOLOL [Concomitant]
  2. LIPITOR [Concomitant]
  3. TESTIM [Suspect]
     Indication: BLOOD TESTOSTERONE DECREASED
     Dosage: 50 MG, 1 IN 1 D, TRANSDERMAL
     Route: 062
     Dates: start: 20110901, end: 20111001

REACTIONS (1)
  - ATRIAL FIBRILLATION [None]
